FAERS Safety Report 25803915 (Version 2)
Quarter: 2025Q4

REPORT INFORMATION
  Report Type: Report from Study
  Country: GB (occurrence: GB)
  Receive Date: 20250915
  Receipt Date: 20251015
  Transmission Date: 20260117
  Serious: Yes (Hospitalization)
  Sender: ABBVIE
  Company Number: GB-ABBVIE-6454317

PATIENT
  Age: 56 Year
  Sex: Female

DRUGS (2)
  1. SKYRIZI [Suspect]
     Active Substance: RISANKIZUMAB-RZAA
     Indication: Psoriasis
     Dosage: SKYRIZI STRENGTH- 150MG/1ML ?FOA- SOLUTION FOR INJECTION PRE-FILLED PENS
     Route: 058
  2. NIZORAL [Concomitant]
     Active Substance: KETOCONAZOLE
     Indication: Product used for unknown indication
     Dosage: SHAMPOO

REACTIONS (8)
  - Dyspnoea [Recovering/Resolving]
  - Arthralgia [Recovered/Resolved]
  - Fibrin D dimer increased [Unknown]
  - Fungal skin infection [Recovering/Resolving]
  - Cough [Recovering/Resolving]
  - Rash [Unknown]
  - Arthralgia [Unknown]
  - Lower respiratory tract infection [Unknown]

NARRATIVE: CASE EVENT DATE: 20250801
